FAERS Safety Report 16361489 (Version 1)
Quarter: 2019Q3

REPORT INFORMATION
  Report Type: Spontaneous
  Country: US (occurrence: US)
  Receive Date: 20190524
  Receipt Date: 20190524
  Transmission Date: 20191004
  Serious: Yes (Hospitalization)
  Sender: FDA-Public Use
  Company Number: None

PATIENT
  Sex: Female

DRUGS (2)
  1. GABAPENTIN, HYDRALAZINE, COREG, MAG OXIDE, PREDNISONE [Concomitant]
  2. LAMIVUDINE. [Suspect]
     Active Substance: LAMIVUDINE
     Indication: RENAL TRANSPLANT
     Route: 048
     Dates: start: 20190501

REACTIONS (1)
  - Hypertension [None]
